FAERS Safety Report 5107063-9 (Version None)
Quarter: 2006Q3

REPORT INFORMATION
  Report Type: 
  Country: None (occurrence: None)
  Receive Date: 20060913
  Receipt Date: 20060906
  Transmission Date: 20061208
  Serious: Yes (Disabling)
  Sender: FDA-Public Use
  Company Number: 0SCN-NO-0608S-0252

PATIENT
  Age: 67 Year
  Sex: Male

DRUGS (18)
  1. OMNISCAN [Suspect]
     Indication: RENAL CELL CARCINOMA RECURRENT
     Dosage: 15 ML, SINGLE DOSE, I.V.
     Route: 042
     Dates: start: 20050510, end: 20050510
  2. OMNISCAN [Suspect]
     Indication: RENAL CELL CARCINOMA RECURRENT
     Dosage: 15 ML, SINGLE DOSE, I.V.
     Route: 042
     Dates: start: 20060423, end: 20060423
  3. ERYTHROPOIETUB ALFA (EPREX) [Concomitant]
  4. FUROSEMIDE [Concomitant]
  5. SEVELAMER HYDROCHLORIDE (RENAGEL) [Concomitant]
  6. SODIUM BICARBONATE [Concomitant]
  7. PARENTROVITE (ORALOVITE) [Concomitant]
  8. DIPYRIDAMOLE (ASASANTIN RETARD) [Concomitant]
  9. SIMVASTATIN [Concomitant]
  10. DIAZEPAM (STESOLID) [Concomitant]
  11. PROPIOMAZINE MALEATE (PROPAVAN) [Concomitant]
  12. ZOLPIDEM TARTRATE [Concomitant]
  13. SODIUM PICOSULFATE (LAXOBERAL) [Concomitant]
  14. DUPHALAC [Concomitant]
  15. SODIUM POLYSTYRENE SULFONATE (RESONIUM) [Concomitant]
  16. QUININE HYDROCHLORIDE (KININ) [Concomitant]
  17. ALFACALCIDOL (ETALPHA) [Concomitant]
  18. SACCHARATED IRON OXIDE (VENOFER) [Concomitant]

REACTIONS (9)
  - GENERAL PHYSICAL HEALTH DETERIORATION [None]
  - JOINT CONTRACTURE [None]
  - JOINT STIFFNESS [None]
  - MOBILITY DECREASED [None]
  - NEPHROGENIC FIBROSING DERMOPATHY [None]
  - OEDEMA PERIPHERAL [None]
  - PARATHYROIDECTOMY [None]
  - POST PROCEDURAL COMPLICATION [None]
  - RESPIRATORY DISTRESS [None]
